FAERS Safety Report 20231707 (Version 1)
Quarter: 2021Q4

REPORT INFORMATION
  Report Type: Spontaneous
  Country: CA (occurrence: CA)
  Receive Date: 20211227
  Receipt Date: 20211227
  Transmission Date: 20220303
  Serious: Yes (Hospitalization)
  Sender: FDA-Public Use
  Company Number: CA-BAYER-2021A268252

PATIENT
  Age: 84 Year
  Sex: Male

DRUGS (14)
  1. CIPRO [Suspect]
     Active Substance: CIPROFLOXACIN HYDROCHLORIDE
     Indication: Streptococcal infection
     Dosage: 500 MG, BID
     Route: 048
  2. CIPRO [Suspect]
     Active Substance: CIPROFLOXACIN HYDROCHLORIDE
     Indication: Staphylococcal infection
  3. CIPRO [Suspect]
     Active Substance: CIPROFLOXACIN HYDROCHLORIDE
     Indication: Pseudomonas infection
  4. ONDANSETRON [Suspect]
     Active Substance: ONDANSETRON
     Indication: Nausea
     Route: 042
  5. PIPERACILLIN SODIUM\TAZOBACTAM SODIUM [Concomitant]
     Active Substance: PIPERACILLIN SODIUM\TAZOBACTAM SODIUM
  6. CLOXACILLIN [Concomitant]
     Active Substance: CLOXACILLIN
  7. CEFTRIAXONE [Concomitant]
     Active Substance: CEFTRIAXONE
     Route: 030
  8. INVANZ [Concomitant]
     Active Substance: ERTAPENEM SODIUM
     Route: 030
  9. CEFAZOLIN [Concomitant]
     Active Substance: CEFAZOLIN
  10. CEFTAZIDIME [Concomitant]
     Active Substance: CEFTAZIDIME
  11. GENTAMICIN [Concomitant]
     Active Substance: GENTAMICIN
  12. MEROPENEM [Concomitant]
     Active Substance: MEROPENEM
     Route: 030
  13. FOSFOMYCIN [Concomitant]
     Active Substance: FOSFOMYCIN
  14. METRONIDAZOLE [Concomitant]
     Active Substance: METRONIDAZOLE

REACTIONS (10)
  - Hypokalaemia [Recovered/Resolved]
  - Foot amputation [Recovered/Resolved]
  - Arterial angioplasty [Recovered/Resolved]
  - Drug ineffective [Recovered/Resolved]
  - Fall [Recovered/Resolved]
  - Pathogen resistance [Recovered/Resolved]
  - Acute kidney injury [Recovered/Resolved]
  - Nausea [Recovered/Resolved]
  - Vomiting [Recovered/Resolved]
  - Decreased appetite [Recovered/Resolved]
